FAERS Safety Report 8927729 (Version 1)
Quarter: 2012Q4

REPORT INFORMATION
  Report Type: 
  Country: IT (occurrence: IT)
  Receive Date: 20121127
  Receipt Date: 20121127
  Transmission Date: 20130627
  Serious: Yes (Death, Other)
  Sender: FDA-Public Use
  Company Number: PHHY2012IT107795

PATIENT
  Age: 53 Year
  Sex: Female

DRUGS (4)
  1. LETROZOLE [Suspect]
     Indication: BREAST CANCER
     Dosage: 2.5 mg, daily
  2. BISPHOSPHONATES [Suspect]
  3. EPIRUBICIN [Concomitant]
  4. CYCLOPHOSPHAMIDE [Concomitant]

REACTIONS (4)
  - Malignant neoplasm progression [Fatal]
  - Gastrointestinal carcinoma [Unknown]
  - Second primary malignancy [Unknown]
  - Dyspepsia [Unknown]
